FAERS Safety Report 19855395 (Version 3)
Quarter: 2021Q4

REPORT INFORMATION
  Report Type: Spontaneous
  Country: PL (occurrence: PL)
  Receive Date: 20210920
  Receipt Date: 20211112
  Transmission Date: 20220303
  Serious: Yes (Death, Life-Threatening, Hospitalization, Other)
  Sender: FDA-Public Use
  Company Number: PL-CELLTRION HEALTHCARE HUNGARY KFT-2021PL012200

PATIENT
  Sex: Male

DRUGS (2)
  1. REMICADE [Suspect]
     Active Substance: INFLIXIMAB
     Indication: Crohn^s disease
     Route: 042
  2. AZATHIOPRINE [Suspect]
     Active Substance: AZATHIOPRINE
     Indication: Colitis ulcerative
     Route: 065

REACTIONS (13)
  - Hodgkin^s disease stage I [Fatal]
  - Multiple organ dysfunction syndrome [Fatal]
  - General physical health deterioration [Unknown]
  - C-reactive protein increased [Unknown]
  - Blood creatinine increased [Unknown]
  - Renal function test abnormal [Unknown]
  - Cardiopulmonary failure [Fatal]
  - Disease progression [Unknown]
  - Drug ineffective [Unknown]
  - Peripheral swelling [Unknown]
  - Oliguria [Unknown]
  - Abdominal lymphadenopathy [Unknown]
  - Hydronephrosis [Unknown]
